FAERS Safety Report 16876135 (Version 2)
Quarter: 2022Q3

REPORT INFORMATION
  Report Type: Spontaneous
  Country: US (occurrence: US)
  Receive Date: 20191002
  Receipt Date: 20220708
  Transmission Date: 20221026
  Serious: Yes (Other)
  Sender: FDA-Public Use
  Company Number: US-GW PHARMA-201908USGW3083

PATIENT

DRUGS (1)
  1. EPIDIOLEX [Suspect]
     Active Substance: CANNABIDIOL
     Indication: Product used for unknown indication
     Dosage: 2.4 MILLILITER, BID
     Route: 048

REACTIONS (5)
  - Product distribution issue [Unknown]
  - Product physical issue [Unknown]
  - Tremor [Unknown]
  - Syringe issue [Unknown]
  - Product use complaint [Unknown]

NARRATIVE: CASE EVENT DATE: 20220630
